FAERS Safety Report 20984550 (Version 1)
Quarter: 2022Q2

REPORT INFORMATION
  Report Type: Spontaneous
  Country: US (occurrence: None)
  Receive Date: 20220621
  Receipt Date: 20220621
  Transmission Date: 20220721
  Serious: No
  Sender: FDA-Public Use
  Company Number: US-ROCHE-2867228

PATIENT
  Age: 62 Year
  Sex: Female

DRUGS (12)
  1. XELODA [Suspect]
     Active Substance: CAPECITABINE
     Indication: Product used for unknown indication
     Dosage: SUBSEQUENT DOSE 500 MG.
     Route: 065
  2. TUKYSA [Suspect]
     Active Substance: TUCATINIB
     Indication: Breast cancer
     Route: 065
  3. CATHFLO ACTIVASE [Concomitant]
     Active Substance: ALTEPLASE
  4. CETIRIZINE [Concomitant]
     Active Substance: CETIRIZINE HYDROCHLORIDE
  5. CEVIMELINE [Concomitant]
     Active Substance: CEVIMELINE
  6. EVOXAC [Concomitant]
     Active Substance: CEVIMELINE HYDROCHLORIDE
  7. IBUPROFEN [Concomitant]
     Active Substance: IBUPROFEN
  8. LORAZEPAM [Concomitant]
     Active Substance: LORAZEPAM
  9. ONDANSETRON [Concomitant]
     Active Substance: ONDANSETRON
  10. PLAQUENIL [Concomitant]
     Active Substance: HYDROXYCHLOROQUINE SULFATE
  11. PROMETHAZINE [Concomitant]
     Active Substance: PROMETHAZINE HYDROCHLORIDE
  12. TEMAZEPAM [Concomitant]
     Active Substance: TEMAZEPAM

REACTIONS (9)
  - Diarrhoea [Unknown]
  - Nausea [Recovering/Resolving]
  - Decreased appetite [Unknown]
  - Palmar-plantar erythrodysaesthesia syndrome [Recovering/Resolving]
  - Pain in extremity [Unknown]
  - Burning sensation [Unknown]
  - Stomatitis [Not Recovered/Not Resolved]
  - Malaise [Unknown]
  - Asthenia [Unknown]

NARRATIVE: CASE EVENT DATE: 20210710
